FAERS Safety Report 6252119-0 (Version None)
Quarter: 2009Q2

REPORT INFORMATION
  Report Type: 
  Country: None (occurrence: None)
  Receive Date: 20090630
  Receipt Date: 20070929
  Transmission Date: 20091009
  Serious: Yes (Hospitalization)
  Sender: FDA-Public Use
  Company Number: US-ROCHE-638781

PATIENT
  Sex: Male

DRUGS (8)
  1. ENFUVIRTIDE [Suspect]
     Route: 065
     Dates: start: 20060512, end: 20080114
  2. NORVIR [Concomitant]
     Dates: start: 20060512, end: 20080814
  3. PREZISTA [Concomitant]
     Dosage: FREQUENCY REPORTED AS 2BID.
     Dates: start: 20060512, end: 20080814
  4. TRUVADA [Concomitant]
     Dosage: TDD: 1 TAB.
     Dates: start: 20060512, end: 20080814
  5. DAPSONE [Concomitant]
     Dosage: TDD: 1 TAB.
     Dates: start: 20060117, end: 20070223
  6. DAPSONE [Concomitant]
     Dates: start: 20071003, end: 20080814
  7. ZITHROMAX [Concomitant]
     Dates: start: 20060912, end: 20061027
  8. BACTRIM DS [Concomitant]
     Dosage: TDD: 1 TAB.
     Dates: start: 20070917, end: 20071003

REACTIONS (2)
  - HYPONATRAEMIA [None]
  - PYREXIA [None]
